FAERS Safety Report 15665431 (Version 1)
Quarter: 2018Q4

REPORT INFORMATION
  Report Type: Spontaneous
  Country: TR (occurrence: TR)
  Receive Date: 20181128
  Receipt Date: 20181128
  Transmission Date: 20190205
  Serious: Yes (Death, Other)
  Sender: FDA-Public Use
  Company Number: TR-JNJFOC-20181135541

PATIENT

DRUGS (1)
  1. XARELTO [Suspect]
     Active Substance: RIVAROXABAN
     Indication: DEEP VEIN THROMBOSIS
     Route: 048

REACTIONS (7)
  - Venous occlusion [Unknown]
  - Off label use [Unknown]
  - Post thrombotic syndrome [Unknown]
  - Adverse reaction [Unknown]
  - Product administration error [Unknown]
  - Death [Fatal]
  - Haemorrhage [Unknown]
